FAERS Safety Report 15837001 (Version 2)
Quarter: 2019Q1

REPORT INFORMATION
  Report Type: Spontaneous
  Country: BE (occurrence: BE)
  Receive Date: 20190117
  Receipt Date: 20190128
  Transmission Date: 20190417
  Serious: Yes (Hospitalization)
  Sender: FDA-Public Use
  Company Number: BE-ROCHE-2244503

PATIENT
  Age: 24 Year
  Sex: Female
  Weight: 55 kg

DRUGS (6)
  1. DIAZEPAM. [Interacting]
     Active Substance: DIAZEPAM
     Dosage: 1 MG/KG CONTINUOUS INFUSION FOR 24 HOURS
     Route: 065
  2. DIAZEPAM. [Suspect]
     Active Substance: DIAZEPAM
     Indication: SEDATION
     Route: 065
  3. NORDIAZEPAM [Concomitant]
     Active Substance: NORDAZEPAM
     Route: 065
  4. TRANXENE [Concomitant]
     Active Substance: CLORAZEPATE DIPOTASSIUM
     Dosage: 3 TABLET OF UNKNOWN DOSAGE
     Route: 065
  5. DIAZEPAM. [Interacting]
     Active Substance: DIAZEPAM
     Route: 065
  6. NIVAQUINE [Interacting]
     Active Substance: CHLOROQUINE
     Indication: MALARIA
     Dosage: 30-40 TABLETS 100 MG, 7.87 UG/ML  1 X
     Route: 048

REACTIONS (7)
  - Hypotension [Recovered/Resolved]
  - Stupor [Recovered/Resolved]
  - Drug interaction [Unknown]
  - Toxicity to various agents [Unknown]
  - Therapeutic response decreased [Unknown]
  - Sedation complication [Recovered/Resolved]
  - Electrocardiogram QT prolonged [Recovered/Resolved]
